FAERS Safety Report 11124224 (Version 1)
Quarter: 2015Q2

REPORT INFORMATION
  Report Type: Spontaneous
  Country: FR (occurrence: None)
  Receive Date: 20150518
  Receipt Date: 20150518
  Transmission Date: 20150821
  Serious: Yes (Other)
  Sender: FDA-Public Use
  Company Number: FK201502282

PATIENT
  Age: 46 Year
  Sex: Female

DRUGS (7)
  1. VINBLASTINE [Suspect]
     Active Substance: VINBLASTINE
     Indication: HIV INFECTION
  2. BLEOMYCIN [Concomitant]
     Active Substance: BLEOMYCIN SULFATE
  3. DOXORUBICIN [Concomitant]
     Active Substance: DOXORUBICIN
  4. STRIBILD [Suspect]
     Active Substance: COBICISTAT\ELVITEGRAVIR\EMTRICITABINE\TENOFOVIR DISOPROXIL FUMARATE
     Indication: HIV INFECTION
  5. STRIBILD [Suspect]
     Active Substance: COBICISTAT\ELVITEGRAVIR\EMTRICITABINE\TENOFOVIR DISOPROXIL FUMARATE
     Indication: HODGKIN^S DISEASE
  6. DACARBAZINE. [Concomitant]
     Active Substance: DACARBAZINE
  7. VINBLASTINE [Suspect]
     Active Substance: VINBLASTINE
     Indication: HODGKIN^S DISEASE

REACTIONS (2)
  - Drug interaction [None]
  - Peripheral sensorimotor neuropathy [None]
